FAERS Safety Report 10246531 (Version 1)
Quarter: 2014Q2

REPORT INFORMATION
  Report Type: Spontaneous
  Country: US (occurrence: US)
  Receive Date: 20140619
  Receipt Date: 20140619
  Transmission Date: 20141212
  Serious: No
  Sender: FDA-Public Use
  Company Number: US-PFIZER INC-2014166098

PATIENT
  Age: 49 Year
  Sex: Female
  Weight: 142 kg

DRUGS (2)
  1. XANAX [Suspect]
     Indication: PANIC DISORDER
     Dosage: UNK, AS NEEDED
  2. XANAX [Suspect]
     Indication: ANXIETY DISORDER

REACTIONS (1)
  - Insomnia [Unknown]
